FAERS Safety Report 4528880-X (Version None)
Quarter: 2004Q4

REPORT INFORMATION
  Report Type: 
  Country: None (occurrence: None)
  Receive Date: 20041214
  Receipt Date: 20041203
  Transmission Date: 20050328
  Serious: Yes (Life-Threatening, Hospitalization)
  Sender: FDA-Public Use
  Company Number: F01200403741

PATIENT
  Age: 68 Year
  Sex: Male

DRUGS (6)
  1. OXALIPLATIN SOLUTION 243 MG SOLUTION 130 MG/M2 [Suspect]
     Indication: COLORECTAL CANCER METASTATIC
     Dosage: SEE IMAGE
     Route: 042
     Dates: start: 20040906, end: 20040906
  2. OXALIPLATIN SOLUTION 243 MG SOLUTION 130 MG/M2 [Suspect]
     Indication: COLORECTAL CANCER METASTATIC
     Dosage: SEE IMAGE
     Route: 042
     Dates: start: 20041110, end: 20041110
  3. CAPECITABINE TABLET 1800 MG TABLET 1000 MG/M2 [Suspect]
     Dosage: SEE IMAGE
     Route: 048
     Dates: start: 20040906, end: 20040916
  4. CAPECITABINE TABLET 1800 MG TABLET 1000 MG/M2 [Suspect]
     Dosage: SEE IMAGE
     Route: 048
     Dates: start: 20041110, end: 20041119
  5. ENOXAPARIN SODIUM [Concomitant]
  6. ENCONCOR (BISOPROLOL) [Concomitant]

REACTIONS (2)
  - CEREBRAL HAEMATOMA [None]
  - HAEMATURIA [None]
